FAERS Safety Report 15285036 (Version 2)
Quarter: 2019Q1

REPORT INFORMATION
  Report Type: Spontaneous
  Country: US (occurrence: US)
  Receive Date: 20180816
  Receipt Date: 20190328
  Transmission Date: 20190417
  Serious: Yes (Hospitalization, Other)
  Sender: FDA-Public Use
  Company Number: US-DSJP-DSU-2017-113780

PATIENT

DRUGS (2)
  1. BENICAR [Suspect]
     Active Substance: OLMESARTAN MEDOXOMIL
     Dosage: 20 MG, UNK
     Route: 048
     Dates: start: 20101014
  2. BENICAR [Suspect]
     Active Substance: OLMESARTAN MEDOXOMIL
     Indication: PRODUCT USED FOR UNKNOWN INDICATION
     Dosage: 40 MG, UNK
     Route: 048
     Dates: start: 20101014, end: 20160201

REACTIONS (7)
  - Sprue-like enteropathy [Not Recovered/Not Resolved]
  - Dizziness [Unknown]
  - Oesophageal stenosis [Not Recovered/Not Resolved]
  - Clostridium difficile colitis [Recovering/Resolving]
  - Gastric ulcer [Unknown]
  - Diverticulum [Unknown]
  - Haemorrhoids [Unknown]

NARRATIVE: CASE EVENT DATE: 20110314
